FAERS Safety Report 14264450 (Version 1)
Quarter: 2017Q4

REPORT INFORMATION
  Report Type: Spontaneous
  Country: US (occurrence: US)
  Receive Date: 20171208
  Receipt Date: 20171208
  Transmission Date: 20180321
  Serious: No
  Sender: FDA-Public Use
  Company Number: US-JAZZ-2017-US-012162

PATIENT
  Sex: Female

DRUGS (26)
  1. CAPSICUM                           /00513701/ [Concomitant]
     Active Substance: CAPSICUM
  2. TOPAMAX [Concomitant]
     Active Substance: TOPIRAMATE
  3. LEVOTHYROXINE. [Concomitant]
     Active Substance: LEVOTHYROXINE
  4. XYREM [Suspect]
     Active Substance: SODIUM OXYBATE
     Indication: NARCOLEPSY
     Dosage: 2.25G, BID
     Route: 048
     Dates: start: 201303, end: 201303
  5. XYREM [Suspect]
     Active Substance: SODIUM OXYBATE
     Dosage: 3.75G, BID
     Route: 048
     Dates: start: 201702
  6. VITAMIN D                          /00107901/ [Concomitant]
     Active Substance: ERGOCALCIFEROL
  7. HCG [Concomitant]
     Active Substance: GONADOTROPHIN, CHORIONIC
  8. VOLTAREN [Concomitant]
     Active Substance: DICLOFENAC SODIUM
  9. NYSTATIN. [Concomitant]
     Active Substance: NYSTATIN
  10. AZITHROMYCIN ANHYDROUS. [Concomitant]
     Active Substance: AZITHROMYCIN ANHYDROUS
  11. XYREM [Suspect]
     Active Substance: SODIUM OXYBATE
     Dosage: 3 G, BID
     Route: 048
     Dates: start: 201303, end: 201702
  12. SAFFLOWERS [Concomitant]
  13. HORSETAIL [Concomitant]
     Active Substance: HERBALS
  14. ALEVE [Concomitant]
     Active Substance: NAPROXEN SODIUM
  15. XANAX [Concomitant]
     Active Substance: ALPRAZOLAM
  16. ADDERALL [Concomitant]
     Active Substance: AMPHETAMINE ASPARTATE\AMPHETAMINE SULFATE\DEXTROAMPHETAMINE SACCHARATE\DEXTROAMPHETAMINE SULFATE
  17. IBUPROFEN                          /00109205/ [Concomitant]
     Active Substance: IBUPROFEN
  18. VITAMIN C [Concomitant]
     Active Substance: ASCORBIC ACID
  19. MSM [Concomitant]
     Active Substance: DIMETHYL SULFONE
  20. NAPROXEN. [Concomitant]
     Active Substance: NAPROXEN
  21. VITAMIN B12 [Concomitant]
     Active Substance: CYANOCOBALAMIN
  22. SAW PALMETTO                       /00833501/ [Concomitant]
     Active Substance: HERBALS\SAW PALMETTO
  23. NORCO [Concomitant]
     Active Substance: ACETAMINOPHEN\HYDROCODONE BITARTRATE
  24. VITAMIN E                          /00110501/ [Concomitant]
     Active Substance: TOCOPHEROL
  25. BUSPIRONE HCL [Concomitant]
     Active Substance: BUSPIRONE HYDROCHLORIDE
  26. ZOLOFT [Concomitant]
     Active Substance: SERTRALINE HYDROCHLORIDE

REACTIONS (1)
  - Limb injury [Unknown]
